FAERS Safety Report 7500891-1 (Version None)
Quarter: 2011Q2

REPORT INFORMATION
  Report Type: 
  Country: None (occurrence: None)
  Receive Date: 20110524
  Receipt Date: 20110512
  Transmission Date: 20111010
  Serious: Yes (Hospitalization)
  Sender: FDA-Public Use
  Company Number: B0719419A

PATIENT

DRUGS (1)
  1. VALTREX [Suspect]
     Dosage: 3000MG PER DAY
     Route: 048

REACTIONS (1)
  - NERVOUS SYSTEM DISORDER [None]
